FAERS Safety Report 5238772-9 (Version None)
Quarter: 2007Q1

REPORT INFORMATION
  Report Type: 
  Country: None (occurrence: None)
  Receive Date: 20070215
  Receipt Date: 20070207
  Transmission Date: 20070707
  Serious: Yes (Hospitalization, Disabling, Other)
  Sender: FDA-Public Use
  Company Number: US-PFIZER INC-2006085926

PATIENT
  Sex: Male
  Weight: 70.3 kg

DRUGS (1)
  1. BEXTRA [Suspect]
     Dates: start: 20020401, end: 20020501

REACTIONS (1)
  - CEREBROVASCULAR ACCIDENT [None]
